FAERS Safety Report 8327598-5 (Version None)
Quarter: 2012Q2

REPORT INFORMATION
  Report Type: 
  Country: None (occurrence: None)
  Receive Date: 20120502
  Receipt Date: 20120417
  Transmission Date: 20120825
  Serious: Yes (Hospitalization)
  Sender: FDA-Public Use
  Company Number: DE-JNJFOC-20120301220

PATIENT
  Age: 48 Year
  Sex: Male

DRUGS (3)
  1. PALIPERIDONE [Suspect]
     Route: 030
     Dates: start: 20120229, end: 20120328
  2. LORAZEPAM [Concomitant]
     Indication: RESTLESSNESS
     Route: 048
     Dates: start: 20120307, end: 20120331
  3. PALIPERIDONE [Suspect]
     Indication: SCHIZOPHRENIA, PARANOID TYPE
     Route: 030
     Dates: start: 20120104, end: 20120228

REACTIONS (3)
  - TREMOR [None]
  - MOVEMENT DISORDER [None]
  - HOSPITALISATION [None]
